FAERS Safety Report 7892899-1 (Version None)
Quarter: 2011Q4

REPORT INFORMATION
  Report Type: 
  Country: None (occurrence: None)
  Receive Date: 20111104
  Receipt Date: 20111026
  Transmission Date: 20120403
  Serious: No
  Sender: FDA-Public Use
  Company Number: US-JNJFOC-20111011854

PATIENT
  Sex: Female

DRUGS (4)
  1. FENTANYL-100 [Suspect]
     Route: 062
     Dates: start: 20110401
  2. FENTANYL-100 [Suspect]
     Indication: PRODUCT USED FOR UNKNOWN INDICATION
     Route: 062
     Dates: start: 20110901
  3. FENTANYL-100 [Suspect]
     Route: 062
     Dates: start: 20110901
  4. FENTANYL-100 [Suspect]
     Route: 062
     Dates: start: 20110901

REACTIONS (2)
  - WITHDRAWAL SYNDROME [None]
  - TREATMENT NONCOMPLIANCE [None]
